FAERS Safety Report 20327265 (Version 1)
Quarter: 2022Q1

REPORT INFORMATION
  Report Type: Report from Study
  Country: ES (occurrence: ES)
  Receive Date: 20220112
  Receipt Date: 20220112
  Transmission Date: 20220423
  Serious: Yes (Other)
  Sender: FDA-Public Use
  Company Number: None

PATIENT
  Age: 59 Year
  Sex: Male

DRUGS (3)
  1. CARBOPLATIN [Suspect]
     Active Substance: CARBOPLATIN
     Indication: Liposarcoma
     Dosage: UNK
     Dates: start: 20200604, end: 20200604
  2. IFOSFAMIDE [Suspect]
     Active Substance: IFOSFAMIDE
     Indication: Liposarcoma
     Dosage: UNK
     Dates: start: 20200604, end: 20200604
  3. ETOPOSIDE [Suspect]
     Active Substance: ETOPOSIDE
     Indication: Liposarcoma
     Dosage: UNK
     Dates: start: 20200604, end: 20200604

REACTIONS (3)
  - Neurotoxicity [Recovered/Resolved]
  - Confusional state [Recovered/Resolved]
  - Disorientation [Recovered/Resolved]

NARRATIVE: CASE EVENT DATE: 20200604
